FAERS Safety Report 8469504-9 (Version None)
Quarter: 2012Q2

REPORT INFORMATION
  Report Type: 
  Country: None (occurrence: None)
  Receive Date: 20120626
  Receipt Date: 20120622
  Transmission Date: 20120825
  Serious: Yes (Other)
  Sender: FDA-Public Use
  Company Number: CHPA2012US012996

PATIENT
  Age: 32 Year
  Sex: Female

DRUGS (2)
  1. VOLTAREN [Suspect]
     Indication: OSTEOARTHRITIS
     Dosage: UNK, UNK
     Route: 061
     Dates: end: 20120601
  2. KEFLEX [Concomitant]

REACTIONS (3)
  - TOOTHACHE [None]
  - PAIN [None]
  - DRUG ADMINISTERED AT INAPPROPRIATE SITE [None]
